FAERS Safety Report 20878016 (Version 2)
Quarter: 2022Q2

REPORT INFORMATION
  Report Type: Spontaneous
  Country: BR (occurrence: BR)
  Receive Date: 20220526
  Receipt Date: 20220527
  Transmission Date: 20220720
  Serious: Yes (Life-Threatening, Other)
  Sender: FDA-Public Use
  Company Number: BR-PFIZER INC-202200341773

PATIENT
  Sex: Male

DRUGS (1)
  1. ALPRAZOLAM [Suspect]
     Active Substance: ALPRAZOLAM
     Dosage: UNK

REACTIONS (13)
  - Suicidal ideation [Unknown]
  - Drug dependence [Unknown]
  - General physical health deterioration [Unknown]
  - Mental impairment [Unknown]
  - Product availability issue [Unknown]
  - Insomnia [Unknown]
  - Tremor [Unknown]
  - Mood altered [Unknown]
  - Pain [Unknown]
  - Loss of personal independence in daily activities [Unknown]
  - Feeling abnormal [Unknown]
  - Autonomic nervous system imbalance [Unknown]
  - Feeling of despair [Unknown]
